FAERS Safety Report 7364443-9 (Version None)
Quarter: 2011Q1

REPORT INFORMATION
  Report Type: 
  Country: None (occurrence: None)
  Receive Date: 20110321
  Receipt Date: 20110222
  Transmission Date: 20110831
  Serious: No
  Sender: FDA-Public Use
  Company Number: US-B.I. PHARMACEUTICALS,INC./RIDGEFIELD-2011-BP-06497BP

PATIENT
  Sex: Female

DRUGS (8)
  1. BYSTOLIC [Concomitant]
     Indication: ATRIAL FIBRILLATION
     Route: 048
  2. VALIUM [Concomitant]
     Indication: ANXIETY
     Route: 048
  3. PROGESTERONE [Concomitant]
     Indication: HORMONE THERAPY
     Route: 048
  4. DEVADOT [Concomitant]
     Indication: HORMONE THERAPY
     Route: 061
  5. TESTOSTERONE [Concomitant]
     Indication: HORMONE THERAPY
     Route: 048
  6. WELLBUTRIN [Concomitant]
     Indication: DEPRESSION
     Route: 048
  7. PRILOSEC [Concomitant]
     Indication: GASTROOESOPHAGEAL REFLUX DISEASE
     Route: 048
  8. PRADAXA [Suspect]
     Indication: ATRIAL FIBRILLATION
     Dosage: 300 MG
     Route: 048
     Dates: start: 20101222

REACTIONS (1)
  - FEELING HOT [None]
